FAERS Safety Report 9052585 (Version 3)
Quarter: 2014Q2

REPORT INFORMATION
  Report Type: Spontaneous
  Country: US (occurrence: US)
  Receive Date: 20130207
  Receipt Date: 20140418
  Transmission Date: 20141212
  Serious: No
  Sender: FDA-Public Use
  Company Number: US-PFIZER INC-2013046968

PATIENT
  Age: 48 Year
  Sex: Female

DRUGS (9)
  1. MORPHINE SULFATE [Suspect]
     Dosage: UNK
     Route: 042
  2. OXYCODONE HYDROCHLORIDE [Suspect]
     Dosage: UNK
  3. DARVOCET [Suspect]
     Dosage: UNK
  4. BACTRIM [Suspect]
     Dosage: UNK
  5. DILAUDID [Suspect]
     Dosage: UNK
  6. PERCOCET [Suspect]
     Dosage: UNK
  7. SAVELLA [Suspect]
     Dosage: UNK
  8. HYDROCODONE [Suspect]
     Dosage: UNK
  9. ACETAMINOPHEN [Suspect]

REACTIONS (1)
  - Drug hypersensitivity [Unknown]
